FAERS Safety Report 25935279 (Version 1)
Quarter: 2025Q4

REPORT INFORMATION
  Report Type: Spontaneous
  Country: US (occurrence: None)
  Receive Date: 20251017
  Receipt Date: 20251017
  Transmission Date: 20260118
  Serious: Yes (Life-Threatening, Disabling, Other)
  Sender: FDA-CTU
  Company Number: None

PATIENT
  Age: 50 Year
  Sex: Female
  Weight: 98.55 kg

DRUGS (3)
  1. PAXIL [Suspect]
     Active Substance: PAROXETINE HYDROCHLORIDE
     Indication: Post-traumatic stress disorder
  2. PAXIL [Suspect]
     Active Substance: PAROXETINE HYDROCHLORIDE
     Indication: Anxiety
  3. PAXIL [Suspect]
     Active Substance: PAROXETINE HYDROCHLORIDE
     Indication: Depression

REACTIONS (16)
  - Drug intolerance [None]
  - Symptom recurrence [None]
  - Withdrawal syndrome [None]
  - Pain [None]
  - Gait inability [None]
  - Movement disorder [None]
  - Tachycardia [None]
  - Intrusive thoughts [None]
  - Suicidal ideation [None]
  - Cognitive disorder [None]
  - Memory impairment [None]
  - Myalgia [None]
  - Arthralgia [None]
  - Metabolic disorder [None]
  - Loss of personal independence in daily activities [None]
  - Weight fluctuation [None]
